FAERS Safety Report 4955337-4 (Version None)
Quarter: 2006Q1

REPORT INFORMATION
  Report Type: 
  Country: None (occurrence: None)
  Receive Date: 20060328
  Receipt Date: 20060209
  Transmission Date: 20060701
  Serious: Yes (Disabling)
  Sender: FDA-Public Use
  Company Number: HQWYE767313FEB06

PATIENT
  Sex: Female

DRUGS (5)
  1. ENBREL [Suspect]
     Indication: RHEUMATOID ARTHRITIS
     Route: 058
     Dates: start: 20051209, end: 20060207
  2. KENACORT [Concomitant]
     Indication: RHEUMATOID ARTHRITIS
     Dosage: UNKNOWN
  3. ETODOLAC [Concomitant]
     Indication: RHEUMATOID ARTHRITIS
     Dosage: UNKNOWN
     Route: 048
     Dates: start: 20050721
  4. VOLTAREN [Concomitant]
     Dates: start: 20030607
  5. UNSPECIFIED MEDICATION [Concomitant]

REACTIONS (4)
  - ABASIA [None]
  - FALL [None]
  - MUSCULAR WEAKNESS [None]
  - SPINAL FRACTURE [None]
